FAERS Safety Report 16628978 (Version 2)
Quarter: 2019Q3

REPORT INFORMATION
  Report Type: Spontaneous
  Country: IT (occurrence: IT)
  Receive Date: 20190725
  Receipt Date: 20190731
  Transmission Date: 20191004
  Serious: Yes (Hospitalization)
  Sender: FDA-Public Use
  Company Number: IT-PFIZER INC-2019316542

PATIENT
  Age: 68 Year
  Sex: Female

DRUGS (1)
  1. TRIATEC [RAMIPRIL] [Suspect]
     Active Substance: RAMIPRIL
     Indication: HYPERTENSION
     Dosage: UNK UNK, UNK
     Route: 048
     Dates: start: 20190629, end: 20190703

REACTIONS (4)
  - Nephritis allergic [Recovering/Resolving]
  - Tongue oedema [Recovering/Resolving]
  - Dyspnoea [Recovering/Resolving]
  - Tongue erythema [Recovering/Resolving]

NARRATIVE: CASE EVENT DATE: 20190703
